FAERS Safety Report 5698828-3 (Version None)
Quarter: 2008Q2

REPORT INFORMATION
  Report Type: 
  Country: None (occurrence: None)
  Receive Date: 20080408
  Receipt Date: 20060707
  Transmission Date: 20081010
  Serious: No
  Sender: FDA-Public Use
  Company Number: US-BAYER-US-2006-013864

PATIENT
  Age: 55 Year
  Sex: Female
  Weight: 51 kg

DRUGS (4)
  1. ULTRAVIST 370 [Suspect]
     Indication: COMPUTERISED TOMOGRAM ABDOMEN
     Dosage: UNIT DOSE: 100 ML
     Route: 042
     Dates: start: 20060517, end: 20060517
  2. PREDNISONE [Concomitant]
     Indication: PREMEDICATION
     Dosage: UNIT DOSE: 20 MG
     Dates: start: 20060516, end: 20060517
  3. BENADRYL ^PFIZER WARNER-LAMBERT^ [Concomitant]
     Indication: PREMEDICATION
     Dosage: UNIT DOSE: 25 MG
     Dates: start: 20060517, end: 20060517
  4. ZANTAC [Concomitant]
     Indication: PREMEDICATION
     Dates: start: 20060517, end: 20060517

REACTIONS (3)
  - PRURITUS [None]
  - RASH [None]
  - URTICARIA [None]
